FAERS Safety Report 8797796 (Version 1)
Quarter: 2012Q4

REPORT INFORMATION
  Report Type: 
  Country: US (occurrence: US)
  Receive Date: 20120920
  Receipt Date: 20120920
  Transmission Date: 20130627
  Serious: Yes (Hospitalization, Other)
  Sender: FDA-Public Use
  Company Number: US-009507513-1209USA005794

PATIENT

DRUGS (1)
  1. JANUMET [Suspect]
     Route: 048

REACTIONS (2)
  - Hospitalisation [Unknown]
  - Pancreatitis [Recovering/Resolving]
